FAERS Safety Report 8513295-X (Version None)
Quarter: 2012Q3

REPORT INFORMATION
  Report Type: 
  Country: None (occurrence: None)
  Receive Date: 20120716
  Receipt Date: 20120708
  Transmission Date: 20120928
  Serious: Yes (Other)
  Sender: FDA-Public Use
  Company Number: AU-ROCHE-1087795

PATIENT
  Sex: Female

DRUGS (1)
  1. ACTEMRA [Suspect]
     Indication: RHEUMATOID ARTHRITIS
     Route: 042
     Dates: start: 20100408

REACTIONS (3)
  - CONSTIPATION [None]
  - HAEMORRHOIDAL HAEMORRHAGE [None]
  - FREQUENT BOWEL MOVEMENTS [None]
